FAERS Safety Report 4312135-2 (Version None)
Quarter: 2004Q1

REPORT INFORMATION
  Report Type: 
  Country: None (occurrence: None)
  Receive Date: 20040305
  Receipt Date: 20040225
  Transmission Date: 20041129
  Serious: Yes (Hospitalization)
  Sender: FDA-Public Use
  Company Number: JP-BRISTOL-MYERS SQUIBB COMPANY-12518551

PATIENT
  Age: 78 Year
  Sex: Male

DRUGS (1)
  1. TAXOL [Suspect]
     Indication: GASTRIC CANCER
     Dosage: THERAPY DATES: 10-DEC-2003 TO 18-FEB-2004
     Route: 042
     Dates: start: 20040218, end: 20040218

REACTIONS (1)
  - HYPOGLYCAEMIA [None]
